FAERS Safety Report 23845398 (Version 1)
Quarter: 2024Q2

REPORT INFORMATION
  Report Type: Spontaneous
  Country: JP (occurrence: JP)
  Receive Date: 20240511
  Receipt Date: 20240511
  Transmission Date: 20240715
  Serious: Yes (Other)
  Sender: FDA-Public Use
  Company Number: JP-MSNLABS-2024MSNLIT01032

PATIENT

DRUGS (8)
  1. FOSAPREPITANT [Suspect]
     Active Substance: FOSAPREPITANT
     Indication: Product used for unknown indication
     Route: 042
  2. OXYCODONE [Suspect]
     Active Substance: OXYCODONE\OXYCODONE HYDROCHLORIDE
     Indication: Proctalgia
     Route: 065
  3. OXYCODONE [Suspect]
     Active Substance: OXYCODONE\OXYCODONE HYDROCHLORIDE
     Dosage: DOSE WAS INCREASED
     Route: 065
  4. OXYCODONE [Suspect]
     Active Substance: OXYCODONE\OXYCODONE HYDROCHLORIDE
     Dosage: REDUCING DOSE OF OXYCODONE TO LESS THAN HALF
     Route: 065
  5. DEXAMETHASONE [Suspect]
     Active Substance: DEXAMETHASONE
     Indication: Product used for unknown indication
     Route: 065
  6. PALONOSETRON [Suspect]
     Active Substance: PALONOSETRON
     Indication: Product used for unknown indication
     Route: 065
  7. DEGARELIX [Concomitant]
     Active Substance: DEGARELIX
     Indication: Prostate cancer
     Route: 065
  8. ABIRATERONE [Concomitant]
     Active Substance: ABIRATERONE
     Indication: Prostate cancer
     Route: 065

REACTIONS (3)
  - Sedation complication [Recovered/Resolved]
  - Respiratory depression [Recovered/Resolved]
  - Drug interaction [Unknown]
